FAERS Safety Report 21644589 (Version 1)
Quarter: 2022Q4

REPORT INFORMATION
  Report Type: Spontaneous
  Country: GR (occurrence: GR)
  Receive Date: 20221125
  Receipt Date: 20221125
  Transmission Date: 20230113
  Serious: Yes (Death, Other)
  Sender: FDA-Public Use
  Company Number: GR-002147023-NVSC2022GR266015

PATIENT
  Sex: Male

DRUGS (1)
  1. ELTROMBOPAG OLAMINE [Suspect]
     Active Substance: ELTROMBOPAG OLAMINE
     Indication: Immune thrombocytopenia
     Dosage: UNK
     Route: 065

REACTIONS (5)
  - Death [Fatal]
  - Urinary tract neoplasm [Recovered/Resolved]
  - Bone pain [Unknown]
  - Trisomy 8 [Unknown]
  - Arthralgia [Unknown]
